FAERS Safety Report 10332174 (Version 3)
Quarter: 2014Q3

REPORT INFORMATION
  Report Type: Spontaneous
  Country: DE (occurrence: DE)
  Receive Date: 20140722
  Receipt Date: 20140909
  Transmission Date: 20150326
  Serious: Yes (Other)
  Sender: FDA-Public Use
  Company Number: DE-BRISTOL-MYERS SQUIBB COMPANY-21212295

PATIENT
  Sex: Female

DRUGS (5)
  1. ABILIFY [Suspect]
     Active Substance: ARIPIPRAZOLE
     Indication: DEPRESSION
     Dosage: AT FIRST 0.2ML IN THE MORNING, IN THE LAST TWO WEEKS BEFORE THIS REPORT 0.4ML
     Route: 048
     Dates: start: 20140215
  2. BISOPROLOL [Concomitant]
     Active Substance: BISOPROLOL
  3. MICARDIS PLUS [Concomitant]
     Active Substance: HYDROCHLOROTHIAZIDE\TELMISARTAN
  4. ELONTRIL [Concomitant]
     Active Substance: BUPROPION HYDROCHLORIDE
  5. ABILIFY [Suspect]
     Active Substance: ARIPIPRAZOLE
     Indication: MENTAL DISORDER
     Dosage: AT FIRST 0.2ML IN THE MORNING, IN THE LAST TWO WEEKS BEFORE THIS REPORT 0.4ML
     Route: 048
     Dates: start: 20140215

REACTIONS (2)
  - Spinal pain [Recovering/Resolving]
  - Off label use [Unknown]

NARRATIVE: CASE EVENT DATE: 20140215
